FAERS Safety Report 7720979-X (Version None)
Quarter: 2011Q3

REPORT INFORMATION
  Report Type: 
  Country: None (occurrence: None)
  Receive Date: 20110831
  Receipt Date: 20110829
  Transmission Date: 20111222
  Serious: Yes (Death, Hospitalization)
  Sender: FDA-Public Use
  Company Number: US-B.I. PHARMACEUTICALS,INC./RIDGEFIELD-2011-BP-19019BP

PATIENT
  Age: 90 Year
  Sex: Male

DRUGS (1)
  1. PRADAXA [Suspect]
     Indication: ATRIAL FIBRILLATION
     Dosage: 150 MG
     Dates: end: 20110801

REACTIONS (4)
  - GASTROINTESTINAL HAEMORRHAGE [None]
  - CARDIOVERSION [None]
  - ISCHAEMIC CARDIOMYOPATHY [None]
  - DYSPNOEA [None]
